FAERS Safety Report 11060261 (Version 1)
Quarter: 2015Q2

REPORT INFORMATION
  Report Type: Spontaneous
  Country: IT (occurrence: IT)
  Receive Date: 20150423
  Receipt Date: 20150423
  Transmission Date: 20150821
  Serious: Yes (Other)
  Sender: FDA-Public Use
  Company Number: IT-APOTEX-2015AP008466

PATIENT
  Age: 54 Year
  Sex: Male

DRUGS (3)
  1. RISEDRONATE [Suspect]
     Active Substance: RISEDRONATE SODIUM
     Indication: OSTEOPOROSIS
     Route: 048
  2. NERIDRONIC ACID [Suspect]
     Active Substance: NERIDRONIC ACID
     Indication: OSTEOPOROSIS
     Route: 042
  3. CLODRONIC ACID [Suspect]
     Active Substance: CLODRONIC ACID
     Indication: OSTEOPOROSIS
     Route: 048

REACTIONS (1)
  - Osteonecrosis of jaw [Unknown]
